FAERS Safety Report 9475773 (Version 2)
Quarter: 2013Q4

REPORT INFORMATION
  Report Type: Spontaneous
  Country: US (occurrence: US)
  Receive Date: 20130826
  Receipt Date: 20131001
  Transmission Date: 20140711
  Serious: No
  Sender: FDA-Public Use
  Company Number: US-PFIZER INC-2013242694

PATIENT
  Age: 74 Year
  Sex: Female
  Weight: 57.6 kg

DRUGS (3)
  1. CELEBREX [Suspect]
     Indication: ARTHRITIS
     Dosage: 200 MG, 1X/DAY
     Dates: start: 2008, end: 2013
  2. EXFORGE [Concomitant]
     Indication: HYPERTENSION
     Dosage: (AMLODIPINE BESILATE 5MG/VALSARTAN 325 MG), 1X/DAY
  3. LUNESTA [Concomitant]
     Indication: SLEEP DISORDER
     Dosage: 2 MG, 1X/DAY

REACTIONS (1)
  - Renal function test abnormal [Unknown]
